FAERS Safety Report 5736197-0 (Version None)
Quarter: 2008Q2

REPORT INFORMATION
  Report Type: 
  Country: None (occurrence: None)
  Receive Date: 20080509
  Receipt Date: 20080509
  Transmission Date: 20081010
  Serious: Yes (Hospitalization, Other)
  Sender: FDA-Public Use
  Company Number: None

PATIENT
  Sex: Female
  Weight: 79.3795 kg

DRUGS (16)
  1. DIGITEK 0.125MG TABLET, ACTAVIS TOTOWA LLC [Suspect]
     Indication: CARDIAC FAILURE
     Dosage: 0.125MG DAILY ORALLY
     Route: 048
  2. DIOVAN [Concomitant]
  3. FUROSEMIDE [Concomitant]
  4. LORAZEPAM [Concomitant]
  5. SENNA S [Concomitant]
  6. BUPROPION HCL [Concomitant]
  7. CARVEDILOL [Concomitant]
  8. MORPHINE SULFATE [Concomitant]
  9. HYDRO/APAP [Concomitant]
  10. IBUPROFEN [Concomitant]
  11. TIZANIDINE HCL [Concomitant]
  12. KLOR-CON [Concomitant]
  13. SPIRONOLACTONE [Concomitant]
  14. PREMPRO [Concomitant]
  15. PREDNISONE TAB [Concomitant]
  16. PROMETHAZINE [Concomitant]

REACTIONS (9)
  - DIZZINESS [None]
  - FATIGUE [None]
  - HEAD DISCOMFORT [None]
  - INFLUENZA LIKE ILLNESS [None]
  - MALAISE [None]
  - NAUSEA [None]
  - PHARMACEUTICAL PRODUCT COMPLAINT [None]
  - PULMONARY OEDEMA [None]
  - VOMITING [None]
